FAERS Safety Report 14657398 (Version 6)
Quarter: 2023Q2

REPORT INFORMATION
  Report Type: Spontaneous
  Country: US (occurrence: None)
  Receive Date: 20180320
  Receipt Date: 20230427
  Transmission Date: 20230721
  Serious: Yes (Other)
  Sender: FDA-Public Use
  Company Number: 2018SE33110

PATIENT
  Age: 62 Year
  Sex: Female
  Weight: 120.2 kg

DRUGS (80)
  1. NEXIUM [Suspect]
     Active Substance: ESOMEPRAZOLE MAGNESIUM
     Indication: Gastrooesophageal reflux disease
     Route: 048
     Dates: start: 2007, end: 2016
  2. NEXIUM [Suspect]
     Active Substance: ESOMEPRAZOLE MAGNESIUM
     Indication: Gastrooesophageal reflux disease
     Route: 048
     Dates: start: 200801, end: 201605
  3. NEXIUM [Suspect]
     Active Substance: ESOMEPRAZOLE MAGNESIUM
     Indication: Gastrooesophageal reflux disease
     Route: 048
     Dates: start: 20080128
  4. NEXIUM [Suspect]
     Active Substance: ESOMEPRAZOLE MAGNESIUM
     Indication: Gastrooesophageal reflux disease
     Route: 048
     Dates: start: 20080506
  5. NEXIUM [Suspect]
     Active Substance: ESOMEPRAZOLE MAGNESIUM
     Indication: Gastrooesophageal reflux disease
     Route: 048
     Dates: start: 20130823
  6. NEXIUM [Suspect]
     Active Substance: ESOMEPRAZOLE MAGNESIUM
     Indication: Gastrooesophageal reflux disease
     Route: 048
     Dates: start: 200801, end: 201606
  7. NEXIUM [Suspect]
     Active Substance: ESOMEPRAZOLE MAGNESIUM
     Indication: Gastrooesophageal reflux disease
     Route: 048
     Dates: start: 20090402
  8. PRILOSEC [Suspect]
     Active Substance: OMEPRAZOLE MAGNESIUM
     Indication: Gastrooesophageal reflux disease
     Dosage: GENERIC
     Dates: start: 2003, end: 2016
  9. PRILOSEC [Suspect]
     Active Substance: OMEPRAZOLE MAGNESIUM
     Indication: Gastrooesophageal reflux disease
     Dosage: GENERIC
     Route: 048
  10. PRILOSEC [Suspect]
     Active Substance: OMEPRAZOLE MAGNESIUM
     Indication: Gastrooesophageal reflux disease
     Route: 048
     Dates: start: 20031015
  11. PRILOSEC [Suspect]
     Active Substance: OMEPRAZOLE MAGNESIUM
     Indication: Gastrooesophageal reflux disease
     Route: 048
  12. PREVACID [Suspect]
     Active Substance: LANSOPRAZOLE
     Indication: Gastrooesophageal reflux disease
     Dosage: GENERIC
     Dates: start: 2004, end: 2005
  13. PREVACID [Suspect]
     Active Substance: LANSOPRAZOLE
     Indication: Gastrooesophageal reflux disease
     Route: 048
     Dates: start: 2006, end: 2007
  14. PROTONIX [Suspect]
     Active Substance: PANTOPRAZOLE SODIUM
     Indication: Gastrooesophageal reflux disease
     Dosage: GENERIC
     Dates: start: 2003, end: 2016
  15. PROTONIX [Suspect]
     Active Substance: PANTOPRAZOLE SODIUM
     Indication: Gastrooesophageal reflux disease
     Dates: start: 2018
  16. PROTONIX [Suspect]
     Active Substance: PANTOPRAZOLE SODIUM
     Indication: Gastrooesophageal reflux disease
     Dates: start: 2020
  17. VITAMIN D3 AND CALCIUM [Concomitant]
     Indication: Osteopenia
     Route: 048
     Dates: start: 2015
  18. VITAMIN C [Concomitant]
     Active Substance: ASCORBIC ACID
     Route: 048
  19. ZYRTEC [Concomitant]
     Active Substance: CETIRIZINE HYDROCHLORIDE
     Indication: Multiple allergies
     Route: 048
  20. TYLENOL [Concomitant]
     Active Substance: ACETAMINOPHEN
     Indication: Pain
  21. CIMETIDINE [Concomitant]
     Active Substance: CIMETIDINE
     Dates: start: 2017
  22. FAMOTIDINE [Concomitant]
     Active Substance: FAMOTIDINE
     Dates: start: 2016
  23. SYNTHROID/LEVOTHROID [Concomitant]
     Indication: Hypothyroidism
     Dosage: HALF TABLET ON SUNDAY
     Dates: start: 2014
  24. ATACAND [Concomitant]
     Active Substance: CANDESARTAN CILEXETIL
     Indication: Hypertension
     Route: 048
     Dates: start: 2007
  25. DETROL [Concomitant]
     Active Substance: TOLTERODINE TARTRATE
     Indication: Hypertonic bladder
     Dosage: EVERY MORNING
     Route: 048
     Dates: start: 2008
  26. CELEXA [Concomitant]
     Active Substance: CITALOPRAM HYDROBROMIDE
     Indication: Neuralgia
     Dates: start: 2015
  27. AMARYL [Concomitant]
     Active Substance: GLIMEPIRIDE
     Indication: Diabetes mellitus
     Route: 048
     Dates: start: 2007
  28. TRIAMTERENE [Concomitant]
     Active Substance: TRIAMTERENE
     Indication: Diuretic therapy
     Dates: start: 20100221
  29. TRIAMTERENE [Concomitant]
     Active Substance: TRIAMTERENE
     Indication: Diuretic therapy
     Dates: start: 2003
  30. AMMONIUM LACTATE [Concomitant]
     Active Substance: AMMONIUM LACTATE
  31. CELEBREX [Concomitant]
     Active Substance: CELECOXIB
     Route: 048
     Dates: start: 20130820
  32. FLONASE [Concomitant]
     Active Substance: FLUTICASONE PROPIONATE
     Route: 045
     Dates: start: 20111215
  33. MAXZIDE [Concomitant]
     Active Substance: HYDROCHLOROTHIAZIDE\TRIAMTERENE
     Dosage: EVERY MORNING
     Route: 048
  34. ACETAMINOPHEN\OXYCODONE HYDROCHLORIDE [Concomitant]
     Active Substance: ACETAMINOPHEN\OXYCODONE HYDROCHLORIDE
     Indication: Pain
  35. ASPIRIN [Concomitant]
     Active Substance: ASPIRIN
     Indication: Deep vein thrombosis
  36. HYDROCHLOROTHIAZIDE [Concomitant]
     Active Substance: HYDROCHLOROTHIAZIDE
     Dosage: 25-37.5
     Route: 048
  37. LIPITOR [Concomitant]
     Active Substance: ATORVASTATIN CALCIUM
     Route: 048
     Dates: start: 20120410
  38. CORDRAN [Concomitant]
     Active Substance: FLURANDRENOLIDE
     Route: 061
  39. TRAZODONE [Concomitant]
     Active Substance: TRAZODONE HYDROCHLORIDE
     Route: 048
  40. AUGMENTIN [Concomitant]
     Active Substance: AMOXICILLIN\CLAVULANATE POTASSIUM
     Dosage: 125-500 MG
     Route: 048
  41. GABAPENTIN [Concomitant]
     Active Substance: GABAPENTIN
     Dosage: 100.0MG UNKNOWN
     Route: 048
  42. ALPRAZOLAM [Concomitant]
     Active Substance: ALPRAZOLAM
     Dosage: 0.5MG UNKNOWN
     Route: 048
     Dates: start: 20091215
  43. MECLIZINE [Concomitant]
     Active Substance: MECLIZINE HYDROCHLORIDE
     Dosage: 25 MG AS NEEDED
  44. CHANTIX [Concomitant]
     Active Substance: VARENICLINE TARTRATE
     Dosage: 1 MG
  45. SANCTURA [Concomitant]
     Active Substance: TROSPIUM CHLORIDE
  46. AMOXICILLIN [Concomitant]
     Active Substance: AMOXICILLIN
  47. IBUPROFEN [Concomitant]
     Active Substance: IBUPROFEN
     Route: 065
  48. CIPROFLOXACIN [Concomitant]
     Active Substance: CIPROFLOXACIN
     Route: 065
     Dates: start: 20091215
  49. ZOCOR/SIMVASTATIN [Concomitant]
     Indication: Blood cholesterol
     Dates: start: 2007
  50. DOVONEX [Concomitant]
     Active Substance: CALCIPOTRIENE
     Route: 065
  51. ZOSTAVAX [Concomitant]
     Active Substance: VARICELLA-ZOSTER VIRUS STRAIN OKA/MERCK LIVE ANTIGEN
     Route: 065
  52. DRAMAMINE [Concomitant]
     Active Substance: DIMENHYDRINATE
     Route: 048
  53. TROLAMINE SALICYLATE [Concomitant]
     Active Substance: TROLAMINE SALICYLATE
     Route: 048
  54. LOMOTIL [Concomitant]
     Active Substance: ATROPINE SULFATE\DIPHENOXYLATE HYDROCHLORIDE
     Route: 048
  55. HYDROXYZINE [Concomitant]
     Active Substance: HYDROXYZINE HYDROCHLORIDE
     Dates: start: 20101121
  56. TRAMADOL [Concomitant]
     Active Substance: TRAMADOL
     Dates: start: 20090828
  57. METHOTREXATE [Concomitant]
     Active Substance: METHOTREXATE
     Indication: Arthritis
     Dates: start: 202101
  58. KEPPRA [Concomitant]
     Active Substance: LEVETIRACETAM
     Indication: Seizure
     Dates: start: 202008
  59. ZONISAMIDE [Concomitant]
     Active Substance: ZONISAMIDE
     Indication: Seizure
     Dates: start: 2020
  60. HYDROXYCHLOROQUINE [Concomitant]
     Active Substance: HYDROXYCHLOROQUINE
     Indication: Arthritis
     Dates: start: 2021
  61. TRIAMCINOLONE ACETONIDE [Concomitant]
     Active Substance: TRIAMCINOLONE ACETONIDE
  62. GENTAMICIN SULFATE [Concomitant]
     Active Substance: GENTAMICIN SULFATE
  63. FLUOCINONIDE [Concomitant]
     Active Substance: FLUOCINONIDE
  64. CEFADROXIL [Concomitant]
     Active Substance: CEFADROXIL
  65. FOLIC ACID [Concomitant]
     Active Substance: FOLIC ACID
  66. PLAQUENIL [Concomitant]
     Active Substance: HYDROXYCHLOROQUINE SULFATE
  67. PREDNISONE [Concomitant]
     Active Substance: PREDNISONE
  68. LIDOCAINE [Concomitant]
     Active Substance: LIDOCAINE
  69. VITAMIN D [Concomitant]
     Active Substance: VITAMIN D NOS
  70. IMPOYZ 0.025% [Concomitant]
  71. ORENCIA [Concomitant]
     Active Substance: ABATACEPT
  72. ESTRADIOL [Concomitant]
     Active Substance: ESTRADIOL
  73. CANDESARTAN [Concomitant]
     Active Substance: CANDESARTAN
  74. MODERNA COVID [Concomitant]
  75. LOTRISONE [Concomitant]
     Active Substance: BETAMETHASONE DIPROPIONATE\CLOTRIMAZOLE
  76. SOLIFENACIN [Concomitant]
     Active Substance: SOLIFENACIN
  77. AMLODIPINE BESILATE/HYDROCHLOROTHIAZIDE/CANDESARTAN CILEXETIL [Concomitant]
  78. CEFPODOXIME PROXETIL/AZITHROMYCIN [Concomitant]
  79. DOCUSATE [Concomitant]
     Active Substance: DOCUSATE
  80. CYANOCOBALAMIN [Concomitant]
     Active Substance: CYANOCOBALAMIN

REACTIONS (4)
  - Chronic kidney disease [Not Recovered/Not Resolved]
  - Acute kidney injury [Not Recovered/Not Resolved]
  - Renal failure [Unknown]
  - Renal impairment [Unknown]

NARRATIVE: CASE EVENT DATE: 20090101
